FAERS Safety Report 20922682 (Version 2)
Quarter: 2022Q2

REPORT INFORMATION
  Report Type: Spontaneous
  Country: FR (occurrence: FR)
  Receive Date: 20220607
  Receipt Date: 20220623
  Transmission Date: 20220721
  Serious: Yes (Hospitalization)
  Sender: FDA-Public Use
  Company Number: None

PATIENT
  Age: 69 Year
  Sex: Male
  Weight: 90 kg

DRUGS (20)
  1. RITUXIMAB [Suspect]
     Active Substance: RITUXIMAB
     Indication: Richter^s syndrome
     Route: 041
     Dates: start: 20220412, end: 20220412
  2. CIPROFLOXACIN [Suspect]
     Active Substance: CIPROFLOXACIN
     Indication: Lung disorder
     Route: 041
     Dates: start: 20220402, end: 20220422
  3. METRONIDAZOLE [Suspect]
     Active Substance: METRONIDAZOLE
     Indication: Tooth infection
     Dosage: 500MG 3/J
     Route: 041
     Dates: start: 20220329, end: 20220405
  4. TRAMADOL HYDROCHLORIDE [Suspect]
     Active Substance: TRAMADOL HYDROCHLORIDE
     Indication: Analgesic therapy
     Dosage: 50MG 3/J
     Route: 048
     Dates: start: 20220328, end: 20220408
  5. METHYLPREDNISOLONE [Suspect]
     Active Substance: METHYLPREDNISOLONE
     Indication: Hormone therapy
     Route: 042
     Dates: start: 20220409, end: 20220412
  6. LINEZOLID [Suspect]
     Active Substance: LINEZOLID
     Indication: Lung disorder
     Dosage: 600MG 2/J
     Route: 041
     Dates: start: 20220407, end: 20220414
  7. ATORVASTATIN [Concomitant]
     Active Substance: ATORVASTATIN
  8. ALLOPURINOL [Concomitant]
     Active Substance: ALLOPURINOL
  9. RISPERIDONE [Concomitant]
     Active Substance: RISPERIDONE
  10. ENALAPRIL [Concomitant]
     Active Substance: ENALAPRIL
  11. MORPHINE [Concomitant]
     Active Substance: MORPHINE
  12. OXYCODONE [Concomitant]
     Active Substance: OXYCODONE
  13. TRANEXAMIC ACID [Concomitant]
     Active Substance: TRANEXAMIC ACID
  14. FUROSEMIDE [Concomitant]
     Active Substance: FUROSEMIDE
  15. PIPERACILLIN SODIUM\TAZOBACTAM SODIUM [Concomitant]
     Active Substance: PIPERACILLIN SODIUM\TAZOBACTAM SODIUM
  16. ROSUVASTATIN [Concomitant]
     Active Substance: ROSUVASTATIN
  17. PIRACETAM [Concomitant]
     Active Substance: PIRACETAM
  18. CLOBAZAM [Concomitant]
     Active Substance: CLOBAZAM
  19. FLUCONAZOLE [Concomitant]
     Active Substance: FLUCONAZOLE
  20. DORZOLAMIDE HYDROCHLORIDE [Concomitant]
     Active Substance: DORZOLAMIDE HYDROCHLORIDE

REACTIONS (3)
  - Hepatic cytolysis [Not Recovered/Not Resolved]
  - Leukopenia [Not Recovered/Not Resolved]
  - Cholestasis [Not Recovered/Not Resolved]

NARRATIVE: CASE EVENT DATE: 20220412
